FAERS Safety Report 12407333 (Version 1)
Quarter: 2016Q2

REPORT INFORMATION
  Report Type: Spontaneous
  Country: US (occurrence: None)
  Receive Date: 20160525
  Receipt Date: 20160525
  Transmission Date: 20160815
  Serious: No
  Sender: FDA-Public Use
  Company Number: None

PATIENT
  Age: 60 Year
  Sex: Female

DRUGS (1)
  1. PROLIA [Suspect]
     Active Substance: DENOSUMAB
     Indication: OSTEOPOROSIS
     Dosage: 60MG/ML SUBCUTANEOUSLY EVERY 6 MONTHS
     Route: 058
     Dates: start: 20140723

REACTIONS (2)
  - Cyst [None]
  - Emotional disorder [None]

NARRATIVE: CASE EVENT DATE: 20160417
